FAERS Safety Report 5075624-1 (Version None)
Quarter: 2006Q3

REPORT INFORMATION
  Report Type: 
  Country: None (occurrence: None)
  Receive Date: 20060804
  Receipt Date: 20060726
  Transmission Date: 20061208
  Serious: Yes (Death)
  Sender: FDA-Public Use
  Company Number: S06-USA-02936-02

PATIENT
  Age: 24 Year
  Sex: Male

DRUGS (1)
  1. LEXAPRO [Suspect]
     Dates: end: 20040724

REACTIONS (2)
  - COMPLETED SUICIDE [None]
  - INJURY ASPHYXIATION [None]
